FAERS Safety Report 8695891 (Version 2)
Quarter: 2013Q4

REPORT INFORMATION
  Report Type: Spontaneous
  Country: US (occurrence: US)
  Receive Date: 20120801
  Receipt Date: 20131105
  Transmission Date: 20140711
  Serious: Yes (Hospitalization)
  Sender: FDA-Public Use
  Company Number: US-009507513-1207USA010746

PATIENT
  Age: 74 Year
  Sex: Female

DRUGS (4)
  1. ZOCOR [Suspect]
     Route: 048
  2. CLARITHROMYCIN [Suspect]
  3. AMOXICILLIN [Concomitant]
  4. OMEPRAZOLE [Concomitant]

REACTIONS (4)
  - Fall [Unknown]
  - Abasia [Unknown]
  - Rhabdomyolysis [Unknown]
  - Drug interaction [Unknown]
